FAERS Safety Report 7069413-6 (Version None)
Quarter: 2010Q4

REPORT INFORMATION
  Report Type: 
  Country: None (occurrence: None)
  Receive Date: 20101028
  Receipt Date: 20101018
  Transmission Date: 20110411
  Serious: Yes (Hospitalization, Disabling, Other)
  Sender: FDA-Public Use
  Company Number: US-MERCK-1006USA03827

PATIENT
  Age: 66 Year
  Sex: Female

DRUGS (3)
  1. FOSAMAX [Suspect]
     Indication: OSTEOPOROSIS PROPHYLAXIS
     Route: 048
     Dates: start: 19970101, end: 20050101
  2. FOSAMAX [Suspect]
     Indication: OSTEOPOROSIS
     Route: 048
     Dates: start: 19970101, end: 20050101
  3. FOSAMAX PLUS D [Suspect]
     Route: 048
     Dates: start: 20050101, end: 20080628

REACTIONS (7)
  - ADVERSE EVENT [None]
  - BREAST CANCER [None]
  - FEMUR FRACTURE [None]
  - INJURY [None]
  - OSTEOGENESIS IMPERFECTA [None]
  - OSTEOPOROSIS [None]
  - TOOTH DISORDER [None]
